FAERS Safety Report 13348992 (Version 1)
Quarter: 2017Q1

REPORT INFORMATION
  Report Type: Spontaneous
  Country: CA (occurrence: CA)
  Receive Date: 20170320
  Receipt Date: 20170320
  Transmission Date: 20170428
  Serious: Yes (Hospitalization, Other)
  Sender: FDA-Public Use
  Company Number: CA-SHIRE-CA201705874

PATIENT
  Sex: Male
  Weight: 2 kg

DRUGS (9)
  1. NICOTINE. [Suspect]
     Active Substance: NICOTINE
     Dosage: UNK, UNKNOWN
     Route: 064
  2. ABILIFY [Suspect]
     Active Substance: ARIPIPRAZOLE
     Indication: PRODUCT USED FOR UNKNOWN INDICATION
     Dosage: 5.0 MG, 1X/DAY:QD
     Route: 064
  3. BUPRENORPHINE HYDROCHLORIDE W/NALOXONE HYDROC [Suspect]
     Active Substance: BUPRENORPHINE HYDROCHLORIDE\NALOXONE HYDROCHLORIDE
     Indication: PRODUCT USED FOR UNKNOWN INDICATION
     Dosage: 22.0 MG, 1X/DAY:QD
     Route: 063
  4. BUPRENORPHINE HYDROCHLORIDE W/NALOXONE HYDROC [Suspect]
     Active Substance: BUPRENORPHINE HYDROCHLORIDE\NALOXONE HYDROCHLORIDE
     Dosage: 22.0 UNK, UNK
     Route: 064
  5. BUPRENORPHINE. [Suspect]
     Active Substance: BUPRENORPHINE
     Dosage: 16.0 MG, 1X/DAY:QD
     Route: 063
  6. DIAZEPAM. [Suspect]
     Active Substance: DIAZEPAM
     Indication: PRODUCT USED FOR UNKNOWN INDICATION
     Dosage: 40.0 MG, 1X/DAY:QD
     Route: 064
  7. NICOTINE. [Suspect]
     Active Substance: NICOTINE
     Indication: PRODUCT USED FOR UNKNOWN INDICATION
     Dosage: UNK, UNKNOWN
     Route: 063
  8. VYVANSE [Suspect]
     Active Substance: LISDEXAMFETAMINE DIMESYLATE
     Indication: PRODUCT USED FOR UNKNOWN INDICATION
     Dosage: 10 MG, 1X/DAY:QD
     Route: 064
  9. BUPRENORPHINE. [Suspect]
     Active Substance: BUPRENORPHINE
     Indication: PRODUCT USED FOR UNKNOWN INDICATION
     Dosage: 16.0 MG, 1X/DAY:QD
     Route: 064

REACTIONS (9)
  - Premature baby [Unknown]
  - Transfusion [Unknown]
  - Foetal exposure during pregnancy [Unknown]
  - Rhesus incompatibility [Unknown]
  - Breech presentation [Unknown]
  - Drug withdrawal syndrome neonatal [Unknown]
  - Jaundice neonatal [Unknown]
  - Exposure during breast feeding [Unknown]
  - Foetal distress syndrome [Unknown]
